FAERS Safety Report 7026695-4 (Version None)
Quarter: 2010Q4

REPORT INFORMATION
  Report Type: 
  Country: None (occurrence: None)
  Receive Date: 20101004
  Receipt Date: 20100915
  Transmission Date: 20110411
  Serious: Yes (Hospitalization)
  Sender: FDA-Public Use
  Company Number: US-SHIRE-SPV1-2010-01603

PATIENT
  Sex: Male
  Weight: 34.921 kg

DRUGS (5)
  1. DAYTRANA [Suspect]
     Indication: ATTENTION DEFICIT/HYPERACTIVITY DISORDER
     Dosage: 20 MG, AS REQ'D
     Route: 062
     Dates: start: 20070101, end: 20070101
  2. DAYTRANA [Suspect]
     Dosage: 15 MG, AS REQ'D
     Route: 062
     Dates: start: 20070101
  3. TRILEPTAL [Concomitant]
     Indication: CONVULSION
     Dosage: 600 MG, 2X/DAY:BID
     Route: 048
  4. TOPAMAX [Concomitant]
     Indication: PRODUCT USED FOR UNKNOWN INDICATION
     Dosage: UNK, UNKNOWN
  5. DEPAKOTE [Concomitant]
     Indication: PRODUCT USED FOR UNKNOWN INDICATION
     Dosage: 250 MG, 2X/DAY:BID

REACTIONS (6)
  - CONVULSION [None]
  - DRUG EFFECT DECREASED [None]
  - DRUG PRESCRIBING ERROR [None]
  - INAPPROPRIATE SCHEDULE OF DRUG ADMINISTRATION [None]
  - LETHARGY [None]
  - PRODUCT QUALITY ISSUE [None]
